FAERS Safety Report 22687051 (Version 7)
Quarter: 2023Q4

REPORT INFORMATION
  Report Type: Report from Study
  Country: US (occurrence: US)
  Receive Date: 20230710
  Receipt Date: 20231128
  Transmission Date: 20240110
  Serious: No
  Sender: FDA-Public Use
  Company Number: US-002147023-NVSC2023US153340

PATIENT
  Sex: Female

DRUGS (2)
  1. KISQALI [Suspect]
     Active Substance: RIBOCICLIB
     Indication: Product used for unknown indication
     Dosage: UNK
     Route: 065
  2. KISQALI [Suspect]
     Active Substance: RIBOCICLIB
     Dosage: 400 MG (DOSE DECREASE TO 400MG)
     Route: 065

REACTIONS (8)
  - Tumour marker increased [Not Recovered/Not Resolved]
  - Bladder spasm [Unknown]
  - Vulvovaginal dryness [Unknown]
  - Weight decreased [Unknown]
  - Visual impairment [Unknown]
  - Dry eye [Unknown]
  - Fatigue [Unknown]
  - Drug ineffective [Unknown]
